FAERS Safety Report 7501792-5 (Version None)
Quarter: 2011Q2

REPORT INFORMATION
  Report Type: 
  Country: None (occurrence: None)
  Receive Date: 20110523
  Receipt Date: 20110523
  Transmission Date: 20111010
  Serious: Yes (Other)
  Sender: FDA-Public Use
  Company Number: None

PATIENT
  Age: 40 Year
  Sex: Female
  Weight: 71.2147 kg

DRUGS (1)
  1. CIPROFLOXACIN HCL [Suspect]
     Indication: BACTERIAL INFECTION
     Dosage: 1 TABLET DAILY 3 DAYS PO
     Route: 048
     Dates: start: 20110506, end: 20110509

REACTIONS (8)
  - JOINT SWELLING [None]
  - GAIT DISTURBANCE [None]
  - MYALGIA [None]
  - FEELING ABNORMAL [None]
  - PAIN [None]
  - INSOMNIA [None]
  - ARTHRALGIA [None]
  - NECK PAIN [None]
